FAERS Safety Report 23595038 (Version 1)
Quarter: 2024Q1

REPORT INFORMATION
  Report Type: Spontaneous
  Country: US (occurrence: US)
  Receive Date: 20240305
  Receipt Date: 20240305
  Transmission Date: 20240410
  Serious: Yes (Other)
  Sender: FDA-Public Use
  Company Number: US-SUN PHARMACEUTICAL INDUSTRIES LTD-2024R1-434256

PATIENT
  Age: 63 Year
  Sex: Male

DRUGS (7)
  1. CARVEDILOL [Interacting]
     Active Substance: CARVEDILOL
     Indication: Cardiac failure
     Dosage: 50 MILLIGRAM, BID
     Route: 065
  2. CARVEDILOL [Interacting]
     Active Substance: CARVEDILOL
     Dosage: 25 MILLIGRAM, BID
     Route: 065
  3. SPIRONOLACTONE [Interacting]
     Active Substance: SPIRONOLACTONE
     Indication: Cardiac failure
     Dosage: 25 MILLIGRAM, DAILY
     Route: 065
  4. VALSARTAN [Interacting]
     Active Substance: VALSARTAN
     Indication: Cardiac failure
     Dosage: 103 MILLIGRAM, BID
     Route: 065
  5. SACUBITRIL [Interacting]
     Active Substance: SACUBITRIL
     Indication: Cardiac failure
     Dosage: 97 MILLIGRAM, BID
     Route: 065
  6. TIRZEPATIDE [Interacting]
     Active Substance: TIRZEPATIDE
     Indication: Diverticulitis
     Dosage: 2.5 MILLIGRAM, WEEKLY
     Route: 065
  7. TIRZEPATIDE [Interacting]
     Active Substance: TIRZEPATIDE
     Dosage: 12.5 MILLIGRAM, WEEKLY
     Route: 065

REACTIONS (5)
  - Drug interaction [Unknown]
  - Presyncope [Recovering/Resolving]
  - Blood creatinine increased [Recovering/Resolving]
  - Renal disorder [Recovering/Resolving]
  - Hypotension [Recovering/Resolving]
